FAERS Safety Report 14301675 (Version 1)
Quarter: 2017Q4

REPORT INFORMATION
  Report Type: Spontaneous
  Country: US (occurrence: US)
  Receive Date: 20171218
  Receipt Date: 20171218
  Transmission Date: 20180321
  Serious: Yes (Other)
  Sender: FDA-Public Use
  Company Number: None

PATIENT
  Age: 37 Year
  Sex: Female
  Weight: 76.95 kg

DRUGS (2)
  1. ORALAIR [Suspect]
     Active Substance: ANTHOXANTHUM ODORATUM POLLEN\DACTYLIS GLOMERATA POLLEN\LOLIUM PERENNE POLLEN\PHLEUM PRATENSE POLLEN\POA PRATENSIS POLLEN
     Indication: CONJUNCTIVITIS ALLERGIC
     Dosage: 300 AS NECESSARY DAILY SUBLINGUAL
     Route: 060
     Dates: start: 20170625, end: 20170625
  2. ORALAIR [Suspect]
     Active Substance: ANTHOXANTHUM ODORATUM POLLEN\DACTYLIS GLOMERATA POLLEN\LOLIUM PERENNE POLLEN\PHLEUM PRATENSE POLLEN\POA PRATENSIS POLLEN
     Indication: SEASONAL ALLERGY
     Dosage: 300 AS NECESSARY DAILY SUBLINGUAL
     Route: 060
     Dates: start: 20170625, end: 20170625

REACTIONS (2)
  - Dysphagia [None]
  - Pharyngeal oedema [None]

NARRATIVE: CASE EVENT DATE: 20170625
